FAERS Safety Report 17074945 (Version 2)
Quarter: 2019Q4

REPORT INFORMATION
  Report Type: Spontaneous
  Country: US (occurrence: US)
  Receive Date: 20191126
  Receipt Date: 20191219
  Transmission Date: 20200122
  Serious: Yes (Other)
  Sender: FDA-Public Use
  Company Number: US-AKORN PHARMACEUTICALS-2019AKN02400

PATIENT
  Age: 15 Year
  Sex: Male
  Weight: 75.74 kg

DRUGS (3)
  1. ZYRTEC [Concomitant]
     Active Substance: CETIRIZINE HYDROCHLORIDE
     Dosage: 5 MG
  2. MYORISAN [Suspect]
     Active Substance: ISOTRETINOIN
     Dosage: 15 MG, 1X/DAY(0.5 CAPSULE; WITH FOOD)
     Route: 048
     Dates: start: 20191014, end: 20191024
  3. ALBUTEROL. [Concomitant]
     Active Substance: ALBUTEROL
     Dosage: 90 ?G

REACTIONS (3)
  - Aggression [Recovered/Resolved]
  - Abnormal behaviour [Recovered/Resolved]
  - Off label use [Recovered/Resolved]

NARRATIVE: CASE EVENT DATE: 20191021
